FAERS Safety Report 9417156 (Version 2)
Quarter: 2013Q3

REPORT INFORMATION
  Report Type: Spontaneous
  Country: BE (occurrence: BE)
  Receive Date: 20130724
  Receipt Date: 20130726
  Transmission Date: 20140515
  Serious: Yes (Death, Life-Threatening, Hospitalization)
  Sender: FDA-Public Use
  Company Number: BE-B.I. PHARMACEUTICALS,INC./RIDGEFIELD-2013-BL-00344BL

PATIENT
  Age: 83 Year
  Sex: Male
  Weight: 52 kg

DRUGS (5)
  1. PRADAXA [Suspect]
     Indication: CEREBROVASCULAR ACCIDENT
     Dosage: 220 MG
     Route: 048
     Dates: start: 20130117, end: 20130607
  2. PRADAXA [Suspect]
     Indication: ATRIAL FIBRILLATION
  3. AMIODARONE [Concomitant]
     Indication: ATRIAL FIBRILLATION
     Dosage: 200 MG
     Route: 048
  4. ZOCOR [Concomitant]
     Indication: PROPHYLAXIS
     Dosage: 20 MG
     Route: 048
  5. L-THYROXINE [Concomitant]
     Indication: THYROIDECTOMY
     Dosage: 100 MCG

REACTIONS (3)
  - Bronchopneumonia [Fatal]
  - Gastrointestinal haemorrhage [Fatal]
  - Iron deficiency anaemia [Not Recovered/Not Resolved]
